FAERS Safety Report 20131266 (Version 1)
Quarter: 2021Q4

REPORT INFORMATION
  Report Type: Report from Study
  Country: EG (occurrence: EG)
  Receive Date: 20211130
  Receipt Date: 20211130
  Transmission Date: 20220303
  Serious: Yes (Hospitalization, Other)
  Sender: FDA-Public Use
  Company Number: EG-NOVARTISPH-NVSC2021EG268027

PATIENT
  Age: 31 Year
  Sex: Male

DRUGS (1)
  1. GILENYA [Suspect]
     Active Substance: FINGOLIMOD HYDROCHLORIDE
     Indication: Multiple sclerosis
     Dosage: 0.5 MG, QD
     Route: 048
     Dates: start: 202010

REACTIONS (11)
  - Balance disorder [Recovered/Resolved]
  - Visual impairment [Recovered/Resolved]
  - Muscle spasms [Recovered/Resolved]
  - Hypoaesthesia [Recovered/Resolved]
  - Multiple sclerosis relapse [Recovered/Resolved]
  - Gastritis [Recovering/Resolving]
  - Colon injury [Recovering/Resolving]
  - COVID-19 [Recovered/Resolved]
  - Ageusia [Recovered/Resolved]
  - Anosmia [Recovered/Resolved]
  - Fatigue [Recovered/Resolved]

NARRATIVE: CASE EVENT DATE: 20210401
